FAERS Safety Report 10480688 (Version 1)
Quarter: 2014Q3

REPORT INFORMATION
  Report Type: Spontaneous
  Country: AU (occurrence: AU)
  Receive Date: 20140929
  Receipt Date: 20140929
  Transmission Date: 20150326
  Serious: Yes (Hospitalization)
  Sender: FDA-Public Use
  Company Number: AU-US-EMD SERONO, INC.-7321211

PATIENT
  Age: 7 Month
  Sex: Male

DRUGS (5)
  1. SEROPHENE [Suspect]
     Active Substance: CLOMIPHENE CITRATE
     Route: 064
     Dates: start: 20130402, end: 20130406
  2. OVIDREL [Suspect]
     Active Substance: CHORIOGONADOTROPIN ALFA
     Indication: IN VITRO FERTILISATION
     Route: 064
  3. CLOMID [Concomitant]
     Active Substance: CLOMIPHENE CITRATE
     Indication: PRODUCT USED FOR UNKNOWN INDICATION
     Route: 064
  4. SEROPHENE [Suspect]
     Active Substance: CLOMIPHENE CITRATE
     Indication: PRODUCT USED FOR UNKNOWN INDICATION
     Dosage: 50 MG DAILY 5-9 OF THE CYCLE
     Route: 064
  5. PROGESTERONE. [Concomitant]
     Active Substance: PROGESTERONE
     Indication: LUTEAL PHASE DEFICIENCY
     Route: 064
     Dates: start: 20130411

REACTIONS (1)
  - Neuroblastoma [Not Recovered/Not Resolved]

NARRATIVE: CASE EVENT DATE: 201408
